FAERS Safety Report 4701246-5 (Version None)
Quarter: 2005Q2

REPORT INFORMATION
  Report Type: 
  Country: None (occurrence: None)
  Receive Date: 20050628
  Receipt Date: 20050309
  Transmission Date: 20051028
  Serious: Yes (Other)
  Sender: FDA-Public Use
  Company Number: US-MERCK-0503USA01726

PATIENT
  Sex: Male
  Weight: 71 kg

DRUGS (1)
  1. VIOXX [Suspect]
     Indication: HEADACHE
     Route: 048
     Dates: start: 20000201, end: 20010601

REACTIONS (3)
  - CEREBROVASCULAR ACCIDENT [None]
  - HEAD INJURY [None]
  - OVERDOSE [None]
